FAERS Safety Report 19384520 (Version 1)
Quarter: 2021Q2

REPORT INFORMATION
  Report Type: Spontaneous
  Country: GB (occurrence: GB)
  Receive Date: 20210608
  Receipt Date: 20210608
  Transmission Date: 20210717
  Serious: Yes (Other)
  Sender: FDA-Public Use
  Company Number: GB-ROCHE-2844051

PATIENT
  Age: 63 Year
  Sex: Male

DRUGS (1)
  1. LUCENTIS [Suspect]
     Active Substance: RANIBIZUMAB
     Indication: RETINAL VEIN OCCLUSION
     Route: 065
     Dates: start: 20210224, end: 20210224

REACTIONS (6)
  - Eye pain [Unknown]
  - Bacterial endophthalmitis [Unknown]
  - Blindness [Unknown]
  - Product administered at inappropriate site [Unknown]
  - Product administration error [Unknown]
  - Ischaemia [Unknown]

NARRATIVE: CASE EVENT DATE: 20210226
